FAERS Safety Report 8974188 (Version 1)
Quarter: 2012Q4

REPORT INFORMATION
  Report Type: Spontaneous
  Country: US (occurrence: None)
  Receive Date: 20121217
  Receipt Date: 20121217
  Transmission Date: 20130627
  Serious: Yes (Life-Threatening)
  Sender: FDA-Public Use
  Company Number: None

PATIENT
  Age: 63 Year
  Sex: Female
  Weight: 75.75 kg

DRUGS (2)
  1. MOXIFLOXACIN [Suspect]
     Indication: SINUSITIS
     Route: 048
     Dates: start: 20121127
  2. MOXIFLOXACIN [Suspect]
     Indication: BRONCHITIS
     Route: 048
     Dates: start: 20121127

REACTIONS (4)
  - Dyspnoea [None]
  - Heart rate irregular [None]
  - Dizziness [None]
  - Atrial fibrillation [None]
